FAERS Safety Report 7020463-5 (Version None)
Quarter: 2010Q3

REPORT INFORMATION
  Report Type: 
  Country: None (occurrence: None)
  Receive Date: 20100929
  Receipt Date: 20100920
  Transmission Date: 20110219
  Serious: Yes (Other)
  Sender: FDA-Public Use
  Company Number: BR-JNJFOC-20100705384

PATIENT
  Age: 65 Year
  Sex: Male
  Weight: 72 kg

DRUGS (2)
  1. REMICADE [Suspect]
     Indication: PSORIASIS
     Route: 042
  2. REMICADE [Suspect]
     Dosage: 15TH INFUSION
     Route: 042

REACTIONS (4)
  - GINGIVAL BLEEDING [None]
  - HEPATIC STEATOSIS [None]
  - HEPATITIS ALCOHOLIC [None]
  - URTICARIA [None]
